FAERS Safety Report 17004953 (Version 1)
Quarter: 2019Q4

REPORT INFORMATION
  Report Type: Spontaneous
  Country: US (occurrence: US)
  Receive Date: 20190925
  Receipt Date: 20190925
  Transmission Date: 20200122
  Serious: Yes (Hospitalization)
  Sender: FDA-Public Use
  Company Number: None

PATIENT
  Age: 70 Year
  Sex: Male

DRUGS (1)
  1. HYDROCHLOROTHIAZIDE. [Suspect]
     Active Substance: HYDROCHLOROTHIAZIDE
     Indication: HYPERTENSION
     Route: 048
     Dates: start: 20190821, end: 20190920

REACTIONS (4)
  - Orthostatic hypotension [None]
  - Dehydration [None]
  - Dizziness [None]
  - Fluid intake reduced [None]

NARRATIVE: CASE EVENT DATE: 20190920
